FAERS Safety Report 14474228 (Version 1)
Quarter: 2018Q1

REPORT INFORMATION
  Report Type: Report from Study
  Country: US (occurrence: US)
  Receive Date: 20180201
  Receipt Date: 20180201
  Transmission Date: 20180509
  Serious: Yes (Other)
  Sender: FDA-Public Use
  Company Number: US-JNJFOC-20180135306

PATIENT
  Sex: Female

DRUGS (1)
  1. STELARA [Suspect]
     Active Substance: USTEKINUMAB
     Indication: CROHN^S DISEASE
     Route: 058

REACTIONS (7)
  - Palpitations [Unknown]
  - Vomiting [Unknown]
  - Somnolence [Unknown]
  - Abdominal distension [Unknown]
  - Migraine [Unknown]
  - Inappropriate schedule of drug administration [Unknown]
  - Gallbladder operation [Unknown]
